FAERS Safety Report 4607525-4 (Version None)
Quarter: 2005Q1

REPORT INFORMATION
  Report Type: 
  Country: None (occurrence: None)
  Receive Date: 20050309
  Receipt Date: 20050221
  Transmission Date: 20050727
  Serious: Yes (Life-Threatening)
  Sender: FDA-Public Use
  Company Number: 212874

PATIENT
  Age: 38 Year
  Sex: Female

DRUGS (8)
  1. HERCEPTIN [Suspect]
     Indication: BREAST CANCER
     Dosage: 6 MG/KG, Q3W, INTRAVNEOUS
     Route: 042
     Dates: start: 20031101, end: 20040501
  2. TAMOXIFEN CITRATE [Concomitant]
  3. GOSEREILIN (GOSERELIN) [Concomitant]
  4. SELENIUM (SELENIUM) [Concomitant]
  5. SENNA (SENNA) [Concomitant]
  6. KELP (IODINE NOS) [Concomitant]
  7. ASCORBIC ACID [Concomitant]
  8. VITAMIN D (CHOLECALCIFEROL) [Concomitant]

REACTIONS (3)
  - DIZZINESS [None]
  - PALPITATIONS [None]
  - VENTRICULAR TACHYCARDIA [None]
